FAERS Safety Report 13084813 (Version 1)
Quarter: 2017Q1

REPORT INFORMATION
  Report Type: Spontaneous
  Country: FR (occurrence: FR)
  Receive Date: 20170104
  Receipt Date: 20170104
  Transmission Date: 20170428
  Serious: Yes (Hospitalization, Other)
  Sender: FDA-Public Use
  Company Number: FR-PFIZER INC-2017001568

PATIENT
  Age: 35 Year
  Sex: Female

DRUGS (1)
  1. LYRICA [Suspect]
     Active Substance: PREGABALIN
     Dosage: 900 MG, DAILY (3 CAPSULES OF 300 MG DAILY)

REACTIONS (2)
  - Paralysis [Unknown]
  - Viral infection [Unknown]
